FAERS Safety Report 6816860-0 (Version None)
Quarter: 2010Q3

REPORT INFORMATION
  Report Type: 
  Country: None (occurrence: None)
  Receive Date: 20100706
  Receipt Date: 20100627
  Transmission Date: 20110219
  Serious: Yes (Other)
  Sender: FDA-Public Use
  Company Number: IT-JNJFOC-20100607699

PATIENT
  Age: 49 Year
  Sex: Female

DRUGS (5)
  1. RISPERDAL [Suspect]
     Indication: SELF INJURIOUS BEHAVIOUR
     Route: 048
  2. LARGACTIL [Suspect]
     Indication: SELF INJURIOUS BEHAVIOUR
     Route: 065
  3. LUDIOMIL [Suspect]
     Indication: SELF INJURIOUS BEHAVIOUR
     Route: 065
  4. EN [Suspect]
     Indication: SELF INJURIOUS BEHAVIOUR
     Route: 065
  5. ENTUMIN [Suspect]
     Indication: SELF INJURIOUS BEHAVIOUR
     Route: 065

REACTIONS (3)
  - SELF INJURIOUS BEHAVIOUR [None]
  - SOPOR [None]
  - TACHYCARDIA [None]
